FAERS Safety Report 6188616-6 (Version None)
Quarter: 2009Q2

REPORT INFORMATION
  Report Type: 
  Country: None (occurrence: None)
  Receive Date: 20090513
  Receipt Date: 20090512
  Transmission Date: 20091009
  Serious: Yes (Hospitalization)
  Sender: FDA-Public Use
  Company Number: B0572720A

PATIENT
  Age: 78 Year
  Sex: Male

DRUGS (8)
  1. AMOXICILLIN TRIHYDRATE [Suspect]
     Dosage: 1000MG THREE TIMES PER DAY
     Route: 048
     Dates: start: 20090202, end: 20090204
  2. TAVANIC [Suspect]
     Dosage: 500MG UNKNOWN
     Route: 048
     Dates: start: 20090204, end: 20090211
  3. PREVISCAN [Concomitant]
     Indication: DRUG USE FOR UNKNOWN INDICATION
     Route: 065
  4. BISOPROLOL [Concomitant]
     Indication: DRUG USE FOR UNKNOWN INDICATION
     Route: 065
  5. PRAVASTATIN [Concomitant]
     Indication: DRUG USE FOR UNKNOWN INDICATION
     Route: 065
  6. PERINDOPRIL ERBUMINE [Concomitant]
     Indication: DRUG USE FOR UNKNOWN INDICATION
     Route: 065
  7. INDAPAMIDE [Concomitant]
     Indication: DRUG USE FOR UNKNOWN INDICATION
     Route: 065
  8. AMIODARONE [Concomitant]
     Indication: DRUG USE FOR UNKNOWN INDICATION
     Route: 065

REACTIONS (2)
  - CYTOLYTIC HEPATITIS [None]
  - HEPATIC ENZYME INCREASED [None]
